FAERS Safety Report 8215024-6 (Version None)
Quarter: 2012Q1

REPORT INFORMATION
  Report Type: 
  Country: None (occurrence: None)
  Receive Date: 20120316
  Receipt Date: 20120314
  Transmission Date: 20120608
  Serious: Yes (Other)
  Sender: FDA-Public Use
  Company Number: US-PFIZER INC-2012067831

PATIENT
  Sex: Female
  Weight: 122 kg

DRUGS (2)
  1. DULCOLAX [Concomitant]
     Indication: CONSTIPATION
     Dosage: UNK
  2. QUINAPRIL HCL [Suspect]
     Indication: HYPERTENSION
     Dosage: 20 MG, 2X/DAY
     Route: 048

REACTIONS (6)
  - DIABETES MELLITUS [None]
  - BLOOD CHOLESTEROL INCREASED [None]
  - MEDICATION RESIDUE [None]
  - FLUID IMBALANCE [None]
  - CARDIAC DISORDER [None]
  - HYPOTHYROIDISM [None]
